FAERS Safety Report 8445789-X (Version None)
Quarter: 2012Q2

REPORT INFORMATION
  Report Type: 
  Country: None (occurrence: None)
  Receive Date: 20120323
  Receipt Date: 20110926
  Transmission Date: 20120825
  Serious: Yes (Other)
  Sender: FDA-Public Use
  Company Number: 163-21880-11063120

PATIENT
  Age: 81 Year
  Sex: Female

DRUGS (2)
  1. REVLIMID [Suspect]
     Indication: MYELOFIBROSIS
     Dosage: 5 MG, 1 IN 1 D, PO, 5 MG, DAILY ONLY MONDAY THROUGH FRIDAY, PO
     Route: 048
     Dates: start: 20081201
  2. REVLIMID [Suspect]
     Indication: MYELOFIBROSIS
     Dosage: 5 MG, 1 IN 1 D, PO, 5 MG, DAILY ONLY MONDAY THROUGH FRIDAY, PO
     Route: 048
     Dates: start: 20110527, end: 20110615

REACTIONS (4)
  - DYSPNOEA [None]
  - RASH MACULO-PAPULAR [None]
  - THROMBOCYTOPENIA [None]
  - FATIGUE [None]
